FAERS Safety Report 7097550-9 (Version None)
Quarter: 2010Q4

REPORT INFORMATION
  Report Type: 
  Country: None (occurrence: None)
  Receive Date: 20101111
  Receipt Date: 20101109
  Transmission Date: 20110411
  Serious: Yes (Death)
  Sender: FDA-Public Use
  Company Number: US-GILEAD-2010-0032374

PATIENT
  Sex: Male

DRUGS (14)
  1. LETAIRIS [Suspect]
     Indication: PULMONARY ARTERIAL HYPERTENSION
     Route: 048
     Dates: start: 20090218
  2. LETAIRIS [Suspect]
     Route: 048
     Dates: start: 20081231
  3. ADCIRCA [Concomitant]
  4. ASPIRIN [Concomitant]
  5. METOPROLOL TARTRATE [Concomitant]
  6. PROMETHAZINE HCL [Concomitant]
  7. HYDROXYZINE HCL [Concomitant]
  8. METHYLPREDNISOLONE [Concomitant]
  9. PREDNISONE [Concomitant]
  10. PRILOSEC [Concomitant]
  11. AMITRIPTYLINE HCL [Concomitant]
  12. CALCIUM CARBONATE [Concomitant]
  13. OXYCODONE HCL [Concomitant]
  14. MORPHINE SULFATE [Concomitant]

REACTIONS (1)
  - MULTI-ORGAN FAILURE [None]
